FAERS Safety Report 19752763 (Version 2)
Quarter: 2022Q1

REPORT INFORMATION
  Report Type: Spontaneous
  Country: US (occurrence: US)
  Receive Date: 20210827
  Receipt Date: 20220211
  Transmission Date: 20220423
  Serious: No
  Sender: FDA-Public Use
  Company Number: US-GSKCCFUS-CASE-01144562_AE-67343

PATIENT
  Age: 51 Year
  Sex: Female

DRUGS (1)
  1. BENLYSTA [Suspect]
     Active Substance: BELIMUMAB
     Indication: Systemic lupus erythematosus
     Dosage: 200 MG, WE
     Dates: start: 202107

REACTIONS (13)
  - Headache [Recovering/Resolving]
  - Nausea [Recovering/Resolving]
  - Decreased appetite [Recovering/Resolving]
  - Asthenia [Not Recovered/Not Resolved]
  - Viral infection [Unknown]
  - Illness [Not Recovered/Not Resolved]
  - Malaise [Unknown]
  - Pain [Not Recovered/Not Resolved]
  - Depression [Not Recovered/Not Resolved]
  - Fatigue [Not Recovered/Not Resolved]
  - Exposure via skin contact [Unknown]
  - Product dose omission in error [Not Recovered/Not Resolved]
  - Wrong technique in device usage process [Unknown]

NARRATIVE: CASE EVENT DATE: 20210801
